FAERS Safety Report 8319295-7 (Version None)
Quarter: 2012Q2

REPORT INFORMATION
  Report Type: 
  Country: None (occurrence: None)
  Receive Date: 20120427
  Receipt Date: 20120419
  Transmission Date: 20120825
  Serious: Yes (Other)
  Sender: FDA-Public Use
  Company Number: CA-JNJFOC-20120410916

PATIENT
  Age: 52 Year
  Sex: Female
  Weight: 112.49 kg

DRUGS (3)
  1. ANTI-DEPRESSANTS [Concomitant]
     Route: 065
  2. UNKNOWN MEDICATION [Concomitant]
     Indication: THYROID DISORDER
     Route: 065
  3. NICORETTE [Suspect]
     Indication: SMOKING CESSATION THERAPY
     Dosage: AS DIRECTED
     Route: 048
     Dates: start: 20120408, end: 20120410

REACTIONS (4)
  - HEART RATE INCREASED [None]
  - EXPIRED DRUG ADMINISTERED [None]
  - HYPOACUSIS [None]
  - TINNITUS [None]
